FAERS Safety Report 9062064 (Version 2)
Quarter: 2013Q2

REPORT INFORMATION
  Report Type: Report from Study
  Country: BR (occurrence: BR)
  Receive Date: 20130204
  Receipt Date: 20130430
  Transmission Date: 20140414
  Serious: Yes (Other)
  Sender: FDA-Public Use
  Company Number: PHHY2013BR008691

PATIENT
  Age: 87 Year
  Sex: Female

DRUGS (13)
  1. EXELON [Suspect]
     Indication: PARKINSON^S DISEASE
     Dosage: 1 DF, DAILY
     Route: 048
     Dates: start: 2001, end: 2005
  2. LOSARTAN [Concomitant]
     Indication: HYPERTENSION
     Dosage: 1 DF, DAILY
     Route: 048
     Dates: start: 2003
  3. SYNTHROID [Concomitant]
     Indication: HYPOTHYROIDISM
     Dosage: 1 DF, DAILY
     Route: 048
     Dates: start: 2003
  4. ARTOGLICO [Concomitant]
     Indication: OSTEOARTHRITIS
     Dosage: 1 DF, DAILY
     Route: 048
     Dates: start: 2003
  5. NEXIUM 1-2-3 [Concomitant]
     Indication: GASTRITIS
     Dosage: 1 DF, DAILY
     Route: 048
  6. NORIPURUM [Concomitant]
     Dosage: 1 DF, EVERY 15 DAYS
     Route: 030
  7. REMERON [Concomitant]
  8. RIVOTRIL [Concomitant]
  9. DORMONID [Concomitant]
  10. ACTONEL [Concomitant]
  11. SEROQUEL [Concomitant]
     Indication: DEMENTIA
     Dosage: 0.5 DF, AT NIGHT
     Route: 048
     Dates: start: 201211
  12. ZYLORIC [Concomitant]
     Indication: ANAEMIA
     Dosage: 1 DF, DAILY
     Dates: start: 201212
  13. ZYLORIC [Concomitant]
     Indication: RENAL DISORDER

REACTIONS (10)
  - Osteoarthritis [Not Recovered/Not Resolved]
  - Dementia Alzheimer^s type [Unknown]
  - Dementia [Recovering/Resolving]
  - Hypothyroidism [Recovering/Resolving]
  - Skin exfoliation [Not Recovered/Not Resolved]
  - Hypertension [Unknown]
  - Eating disorder [Recovering/Resolving]
  - Incoherent [Recovering/Resolving]
  - Anaemia [Recovering/Resolving]
  - Blood pressure fluctuation [Unknown]
